FAERS Safety Report 8216330-1 (Version None)
Quarter: 2012Q1

REPORT INFORMATION
  Report Type: 
  Country: None (occurrence: None)
  Receive Date: 20120316
  Receipt Date: 20120309
  Transmission Date: 20120608
  Serious: Yes (Hospitalization)
  Sender: FDA-Public Use
  Company Number: PHEH2012US004245

PATIENT
  Sex: Male

DRUGS (4)
  1. PANTOPRAZOLE [Concomitant]
     Dosage: 40 MG, QAM
     Route: 048
  2. CLOZARIL [Suspect]
     Dosage: 300 MG, (200 MG HS AND 100 MG AM)
     Route: 048
  3. SODIUM CHLORIDE [Concomitant]
     Dosage: 1 G, BID
     Route: 048
  4. GABAPENTIN [Concomitant]
     Dosage: 300 MG, BID
     Route: 048

REACTIONS (3)
  - WHITE BLOOD CELL COUNT DECREASED [None]
  - POLYDIPSIA PSYCHOGENIC [None]
  - WHITE BLOOD CELL COUNT INCREASED [None]
